FAERS Safety Report 11080382 (Version 1)
Quarter: 2015Q2

REPORT INFORMATION
  Report Type: Spontaneous
  Country: AU (occurrence: AU)
  Receive Date: 20150430
  Receipt Date: 20150430
  Transmission Date: 20150821
  Serious: Yes (Life-Threatening, Hospitalization)
  Sender: FDA-Public Use
  Company Number: AU-ASTRAZENECA-2015SE40220

PATIENT
  Age: 0 Day
  Sex: Male
  Weight: 2.5 kg

DRUGS (3)
  1. ARIPIPRAZOLE. [Suspect]
     Active Substance: ARIPIPRAZOLE
     Route: 064
  2. BLACKMORES PREGNANCY AND BREAST-FEEDING FORMULA [Concomitant]
     Route: 064
  3. SEROQUEL [Suspect]
     Active Substance: QUETIAPINE FUMARATE
     Route: 064

REACTIONS (5)
  - Foetal exposure during pregnancy [Unknown]
  - Poor sucking reflex [Recovered/Resolved]
  - Premature baby [Recovered/Resolved]
  - Jaundice [Recovered/Resolved]
  - Hyperthermia [Recovered/Resolved]

NARRATIVE: CASE EVENT DATE: 20141211
